FAERS Safety Report 9626762 (Version 6)
Quarter: 2014Q3

REPORT INFORMATION
  Report Type: Spontaneous
  Country: US (occurrence: US)
  Receive Date: 20131016
  Receipt Date: 20140902
  Transmission Date: 20150326
  Serious: Yes (Hospitalization)
  Sender: FDA-Public Use
  Company Number: US-GLAXOSMITHKLINE-A1045406A

PATIENT
  Age: 81 Year
  Sex: Female

DRUGS (17)
  1. MEDROL [Concomitant]
     Active Substance: METHYLPREDNISOLONE
  2. NASONEX [Concomitant]
     Active Substance: MOMETASONE FUROATE
  3. NORVASC [Concomitant]
     Active Substance: AMLODIPINE BESYLATE
     Dosage: 2.5MG TWICE PER DAY
  4. IRON [Concomitant]
     Active Substance: IRON
     Dosage: 325MG PER DAY
  5. LEVOTHYROXINE [Concomitant]
     Active Substance: LEVOTHYROXINE
     Dosage: 25MCG PER DAY
  6. ALLERGY MEDICATION [Concomitant]
     Active Substance: DIPHENHYDRAMINE HYDROCHLORIDE
  7. METOPROLOL TARTRATE. [Concomitant]
     Active Substance: METOPROLOL TARTRATE
  8. CLONIDINE. [Concomitant]
     Active Substance: CLONIDINE
     Dosage: .2MG TWICE PER DAY
  9. LORTAB [Concomitant]
     Active Substance: ACETAMINOPHEN\HYDROCODONE BITARTRATE
  10. OMEPRAZOLE. [Concomitant]
     Active Substance: OMEPRAZOLE
     Dosage: 20MG TWICE PER DAY
  11. ADVAIR HFA [Suspect]
     Active Substance: FLUTICASONE PROPIONATE\SALMETEROL XINAFOATE
     Indication: ASTHMA
     Dosage: 1PUFF TWICE PER DAY
     Route: 055
     Dates: start: 2000
  12. METFORMIN [Concomitant]
     Active Substance: METFORMIN HYDROCHLORIDE
     Dosage: 500MG PER DAY
  13. HALFPRIN [Concomitant]
  14. FOLIC ACID. [Concomitant]
     Active Substance: FOLIC ACID
     Dosage: 1MG PER DAY
  15. PROVENTIL [Concomitant]
     Active Substance: ALBUTEROL
     Route: 055
  16. UNKNOWN MEDICATION [Concomitant]
     Active Substance: UNSPECIFIED INGREDIENT
  17. MICARDIS [Concomitant]
     Active Substance: TELMISARTAN

REACTIONS (19)
  - Mobility decreased [Recovering/Resolving]
  - Weight decreased [Unknown]
  - Arthropathy [Recovering/Resolving]
  - Osteoporosis [Unknown]
  - Bone disorder [Recovered/Resolved]
  - Cardiac valve disease [Recovered/Resolved]
  - Aortic stenosis [Unknown]
  - Diabetes mellitus [Unknown]
  - Weight increased [Unknown]
  - Candida infection [Recovered/Resolved]
  - Claustrophobia [Unknown]
  - Dysphonia [Unknown]
  - Coronary artery occlusion [Recovered/Resolved]
  - Herpes zoster [Unknown]
  - Wheezing [Unknown]
  - Dyspnoea [Unknown]
  - Sleep apnoea syndrome [Unknown]
  - Hypertension [Unknown]
  - Arthralgia [Unknown]
